FAERS Safety Report 7483234-1 (Version None)
Quarter: 2011Q2

REPORT INFORMATION
  Report Type: 
  Country: None (occurrence: None)
  Receive Date: 20110516
  Receipt Date: 20110407
  Transmission Date: 20111010
  Serious: Yes (Disabling)
  Sender: FDA-Public Use
  Company Number: PHHY2011IT24408

PATIENT
  Age: 72 Year
  Sex: Male

DRUGS (3)
  1. ZOMETA [Suspect]
     Indication: METASTASES TO BONE
     Dosage: 4 MG, PER MONTH
     Route: 042
     Dates: start: 20021130
  2. CORTICOSTEROID NOS [Concomitant]
     Dosage: UNK
  3. THALIDOMIDE [Concomitant]
     Dosage: UNK

REACTIONS (2)
  - OSTEONECROSIS OF JAW [None]
  - BONE DISORDER [None]
